FAERS Safety Report 6906031-1 (Version None)
Quarter: 2010Q3

REPORT INFORMATION
  Report Type: 
  Country: None (occurrence: None)
  Receive Date: 20100804
  Receipt Date: 20100727
  Transmission Date: 20110219
  Serious: Yes (Hospitalization)
  Sender: FDA-Public Use
  Company Number: PHHO2010BG11654

PATIENT
  Age: 48 Year
  Sex: Female
  Weight: 49 kg

DRUGS (4)
  1. TRILEPTAL [Suspect]
     Indication: EPILEPSY
     Dosage: 300 MG, TID
     Route: 048
     Dates: start: 20080201
  2. DIAZEPAM [Suspect]
     Indication: ANXIETY
  3. ZOPICLONE [Suspect]
     Indication: ANXIETY
  4. GABAPENTIN [Suspect]

REACTIONS (7)
  - DEPRESSION [None]
  - GASTRIC LAVAGE [None]
  - INTENTIONAL OVERDOSE [None]
  - STRESS [None]
  - STUPOR [None]
  - SUICIDAL IDEATION [None]
  - SUICIDE ATTEMPT [None]
